FAERS Safety Report 7241854-3 (Version None)
Quarter: 2011Q1

REPORT INFORMATION
  Report Type: 
  Country: None (occurrence: None)
  Receive Date: 20110124
  Receipt Date: 20110112
  Transmission Date: 20110831
  Serious: Yes (Hospitalization, Other)
  Sender: FDA-Public Use
  Company Number: PHHY2009DE47045

PATIENT
  Sex: Male
  Weight: 96 kg

DRUGS (10)
  1. METOPROLOL SUCCINATE [Concomitant]
  2. EULEXIN [Concomitant]
     Dosage: UNK
     Dates: start: 20081114
  3. PRAVASTATIN SODIUM [Concomitant]
     Dosage: 20 MG, UNK
  4. ZOMETA [Suspect]
     Dosage: 4 MG
     Route: 042
     Dates: start: 20110107
  5. CASODEX [Concomitant]
     Dosage: UNK
     Dates: start: 20081114
  6. PANTOZOL [Concomitant]
     Dosage: 40 MG
  7. ZOMETA [Suspect]
     Indication: PROSTATE CANCER METASTATIC
     Dosage: 4 MG
     Route: 042
     Dates: start: 20081106
  8. RADIOTHERAPY [Concomitant]
     Dosage: 36 GY
     Dates: start: 20090108, end: 20090202
  9. VOLTAREN [Concomitant]
     Dates: start: 20081101
  10. JURNISTRA [Concomitant]
     Dosage: 8 MG, UNK
     Dates: start: 20081101

REACTIONS (4)
  - JOINT INSTABILITY [None]
  - NEOPLASM MALIGNANT [None]
  - METASTASES TO LIVER [None]
  - METASTASES TO BONE [None]
